FAERS Safety Report 6203279-9 (Version None)
Quarter: 2009Q2

REPORT INFORMATION
  Report Type: 
  Country: None (occurrence: None)
  Receive Date: 20090522
  Receipt Date: 20090522
  Transmission Date: 20091009
  Serious: Yes (Hospitalization)
  Sender: FDA-Public Use
  Company Number: None

PATIENT
  Sex: Female
  Weight: 125.45 kg

DRUGS (3)
  1. CARBOPLATIN [Suspect]
     Dosage: 775 MG
  2. TAXOL [Suspect]
     Dosage: 410 MG
  3. ALDACTONE [Concomitant]

REACTIONS (5)
  - ANOREXIA [None]
  - BLOOD CREATININE INCREASED [None]
  - MALAISE [None]
  - NAUSEA [None]
  - VOMITING [None]
